FAERS Safety Report 18070411 (Version 1)
Quarter: 2020Q3

REPORT INFORMATION
  Report Type: Spontaneous
  Country: US (occurrence: US)
  Receive Date: 20200727
  Receipt Date: 20200727
  Transmission Date: 20201103
  Serious: No
  Sender: FDA-Public Use
  Company Number: US-ALKEM LABORATORIES LIMITED-US-ALKEM-2020-00572

PATIENT
  Sex: Female

DRUGS (2)
  1. IMBRUVICA [Suspect]
     Active Substance: IBRUTINIB
     Indication: CHRONIC LYMPHOCYTIC LEUKAEMIA
     Dosage: 420 MILLIGRAM, QD
     Route: 065
     Dates: start: 20200101
  2. MARINOL [Suspect]
     Active Substance: DRONABINOL
     Indication: APPETITE DISORDER
     Dosage: UNKNOWN
     Route: 065

REACTIONS (1)
  - Weight increased [Not Recovered/Not Resolved]
